FAERS Safety Report 23214839 (Version 1)
Quarter: 2023Q4

REPORT INFORMATION
  Report Type: Spontaneous
  Country: FR (occurrence: FR)
  Receive Date: 20231121
  Receipt Date: 20231121
  Transmission Date: 20240109
  Serious: Yes (Hospitalization, Other)
  Sender: FDA-Public Use
  Company Number: None

PATIENT
  Age: 40 Year
  Sex: Female
  Weight: 77 kg

DRUGS (4)
  1. TRAMADOL HYDROCHLORIDE [Suspect]
     Active Substance: TRAMADOL HYDROCHLORIDE
     Indication: Product used for unknown indication
     Dosage: UNIT DOSE:800MG,FREQUENCY TIME:1 DAYS, THERAPY START DATE:NASK
     Dates: end: 202310
  2. ACETAMINOPHEN [Suspect]
     Active Substance: ACETAMINOPHEN
     Indication: Product used for unknown indication
     Dosage: UNIT DOSE:6GRAM,FREQUQNCY TIME:1 DAYS
     Route: 065
  3. ALPRAZOLAM [Suspect]
     Active Substance: ALPRAZOLAM
     Indication: Product used for unknown indication
     Dosage: UNIT DOSE:2.5MG,FREQUENCY TIME:1 DAYS
  4. PECFENT [Suspect]
     Active Substance: FENTANYL CITRATE
     Indication: Product used for unknown indication
     Dosage: THERAPY END DATE: NASK, FREQUENCY TIME;1 DAYS
     Dates: start: 202211

REACTIONS (2)
  - Malaise [Recovered/Resolved]
  - Substance abuser [Not Recovered/Not Resolved]

NARRATIVE: CASE EVENT DATE: 20230101
